FAERS Safety Report 13707544 (Version 1)
Quarter: 2017Q2

REPORT INFORMATION
  Report Type: Spontaneous
  Country: US (occurrence: US)
  Receive Date: 20170630
  Receipt Date: 20170630
  Transmission Date: 20170830
  Serious: No
  Sender: FDA-Public Use
  Company Number: US-PFIZER INC-2017286270

PATIENT
  Age: 53 Year
  Sex: Female
  Weight: 52 kg

DRUGS (2)
  1. ADVIL [Suspect]
     Active Substance: IBUPROFEN
     Indication: PERIARTHRITIS
     Dosage: UNK
     Dates: start: 2017, end: 2017
  2. ADVIL [Suspect]
     Active Substance: IBUPROFEN
     Dosage: 200 MG, 2X/DAY (ONE LIQUIGEL IN THE AM AND ONE IN THE PM)
     Dates: start: 20170627, end: 20170627

REACTIONS (2)
  - Urticaria [Not Recovered/Not Resolved]
  - Condition aggravated [Not Recovered/Not Resolved]

NARRATIVE: CASE EVENT DATE: 2017
